FAERS Safety Report 20976841 (Version 1)
Quarter: 2022Q2

REPORT INFORMATION
  Report Type: Spontaneous
  Country: CN (occurrence: CN)
  Receive Date: 20220617
  Receipt Date: 20220617
  Transmission Date: 20220720
  Serious: Yes (Other)
  Sender: FDA-Public Use
  Company Number: None

PATIENT
  Age: 48 Year
  Sex: Male
  Weight: 54 kg

DRUGS (3)
  1. MANNITOL [Suspect]
     Active Substance: MANNITOL
     Indication: Patella fracture
     Dosage: 200 ML, QD
     Route: 041
     Dates: start: 20220527, end: 20220530
  2. VITAMINS [Suspect]
     Active Substance: VITAMINS
     Indication: Patella fracture
     Dosage: 216.35 MG, QD
     Route: 041
     Dates: start: 20220527, end: 20220530
  3. LORNOXICAM [Suspect]
     Active Substance: LORNOXICAM
     Indication: Patella fracture
     Dosage: 8 MG, QD
     Route: 041
     Dates: start: 20220527, end: 20220530

REACTIONS (1)
  - Urinary retention [Recovering/Resolving]

NARRATIVE: CASE EVENT DATE: 20220530
